FAERS Safety Report 5846721-5 (Version None)
Quarter: 2008Q3

REPORT INFORMATION
  Report Type: 
  Country: None (occurrence: None)
  Receive Date: 20080814
  Receipt Date: 20080808
  Transmission Date: 20090109
  Serious: Yes (Life-Threatening)
  Sender: FDA-Public Use
  Company Number: APP200800737

PATIENT
  Age: 72 Year
  Sex: Male
  Weight: 88.45 kg

DRUGS (6)
  1. HEPARIN SODIUM INJECTION [Suspect]
     Indication: DEEP VEIN THROMBOSIS
     Dosage: 10000 USP UNITS, ONCE, INTRAVENOUS BOLUS
     Route: 040
     Dates: start: 20080806, end: 20080806
  2. HEPARIN [Suspect]
     Indication: DEEP VEIN THROMBOSIS
     Dosage: INTRAVENOUS DRIP
     Route: 041
     Dates: start: 20080806, end: 20080806
  3. PERCOCET [Suspect]
  4. WARFARIN SODIUM [Concomitant]
  5. TEMAZEPAM [Concomitant]
  6. SOMA [Concomitant]

REACTIONS (3)
  - DYSPNOEA [None]
  - ERYTHEMA [None]
  - PHARMACEUTICAL PRODUCT COMPLAINT [None]
